FAERS Safety Report 9901281 (Version 4)
Quarter: 2014Q4

REPORT INFORMATION
  Report Type: Spontaneous
  Country: US (occurrence: US)
  Receive Date: 20140217
  Receipt Date: 20141121
  Transmission Date: 20150529
  Serious: Yes (Other)
  Sender: FDA-Public Use
  Company Number: US-BAYER-2014-024321

PATIENT
  Age: 37 Year
  Sex: Female
  Weight: 68.27 kg

DRUGS (5)
  1. CYLEX [Concomitant]
     Dosage: UNK
     Dates: start: 20100401
  2. MICRONOR [Concomitant]
     Active Substance: NORETHINDRONE
  3. CELEXA [Concomitant]
     Active Substance: CITALOPRAM HYDROBROMIDE
  4. TOPAMAX [Concomitant]
     Active Substance: TOPIRAMATE
     Dosage: UNK
     Dates: start: 20100401
  5. MIRENA [Suspect]
     Active Substance: LEVONORGESTREL
     Indication: CONTRACEPTION
     Dosage: 20 MCG/24HR, CONT
     Route: 015
     Dates: start: 20090223, end: 20100401

REACTIONS (13)
  - Scar [None]
  - Dyspareunia [None]
  - Medical device discomfort [None]
  - Embedded device [None]
  - Anxiety [None]
  - Device failure [None]
  - Emotional distress [None]
  - Procedural pain [None]
  - Injury [None]
  - Pain [None]
  - Depression [None]
  - Medical device pain [None]
  - Device issue [None]

NARRATIVE: CASE EVENT DATE: 200903
